FAERS Safety Report 6429290-0 (Version None)
Quarter: 2009Q4

REPORT INFORMATION
  Report Type: 
  Country: None (occurrence: None)
  Receive Date: 20091105
  Receipt Date: 20091102
  Transmission Date: 20100525
  Serious: Yes (Death)
  Sender: FDA-Public Use
  Company Number: PHHY2009CA47100

PATIENT
  Sex: Female

DRUGS (8)
  1. ACLASTA [Suspect]
     Indication: OSTEOPOROSIS
     Dosage: UNK
     Route: 042
     Dates: start: 20081001
  2. TENORMIN [Concomitant]
  3. ADALAT [Concomitant]
  4. NOVASEN [Concomitant]
  5. HYDRODIURIL [Concomitant]
  6. MICRO-K [Concomitant]
  7. LIPITOR [Concomitant]
  8. PLAVIX [Concomitant]

REACTIONS (1)
  - MYOCARDIAL INFARCTION [None]
